FAERS Safety Report 7669381-X (Version None)
Quarter: 2011Q3

REPORT INFORMATION
  Report Type: 
  Country: None (occurrence: None)
  Receive Date: 20110808
  Receipt Date: 20110727
  Transmission Date: 20111222
  Serious: Yes (Other)
  Sender: FDA-Public Use
  Company Number: BR-ROCHE-793178

PATIENT
  Age: 50 Year
  Sex: Male
  Weight: 103 kg

DRUGS (2)
  1. INTERFERON ALFA [Suspect]
     Indication: HEPATITIS C
     Route: 065
  2. RIBAVARIN [Suspect]
     Indication: HEPATITIS C
     Route: 065

REACTIONS (1)
  - WEIGHT INCREASED [None]
